FAERS Safety Report 7883043-5 (Version None)
Quarter: 2011Q4

REPORT INFORMATION
  Report Type: 
  Country: None (occurrence: None)
  Receive Date: 20111102
  Receipt Date: 20111025
  Transmission Date: 20120403
  Serious: Yes (Death)
  Sender: FDA-Public Use
  Company Number: US-BIOGENIDEC-2011BI023244

PATIENT
  Age: 36 Year
  Sex: Male

DRUGS (1)
  1. AVONEX [Suspect]
     Indication: MULTIPLE SCLEROSIS
     Route: 030
     Dates: start: 20100406

REACTIONS (4)
  - FALL [None]
  - FACIAL BONES FRACTURE [None]
  - DEATH [None]
  - CRANIOCEREBRAL INJURY [None]
